FAERS Safety Report 11759213 (Version 1)
Quarter: 2015Q4

REPORT INFORMATION
  Report Type: Spontaneous
  Country: US (occurrence: US)
  Receive Date: 20151120
  Receipt Date: 20151120
  Transmission Date: 20160304
  Serious: No
  Sender: FDA-Public Use
  Company Number: US-JNJFOC-20150926285

PATIENT
  Age: 77 Year
  Sex: Female
  Weight: 81.65 kg

DRUGS (2)
  1. WOMENS ROGAINE [Suspect]
     Active Substance: MINOXIDIL
     Route: 061
  2. WOMENS ROGAINE [Suspect]
     Active Substance: MINOXIDIL
     Indication: ALOPECIA
     Dosage: FIVE WEEKS AGO, ONCE DAILY FOR THE MOST, 1 ML DROPPER
     Route: 061

REACTIONS (1)
  - Inappropriate schedule of drug administration [Unknown]
